FAERS Safety Report 8181712-3 (Version None)
Quarter: 2012Q1

REPORT INFORMATION
  Report Type: 
  Country: None (occurrence: None)
  Receive Date: 20120302
  Receipt Date: 20111012
  Transmission Date: 20120608
  Serious: Yes (Other)
  Sender: FDA-Public Use
  Company Number: US-AMGEN-USASP2011050065

PATIENT
  Sex: Female
  Weight: 58 kg

DRUGS (6)
  1. ZOFRAN [Concomitant]
     Dosage: 32 MG, UNK
  2. NPLATE [Suspect]
     Indication: IDIOPATHIC THROMBOCYTOPENIC PURPURA
     Dosage: 10 MUG/KG, UNK
     Dates: start: 20110331, end: 20110714
  3. CORTICOSTEROIDS [Concomitant]
     Indication: IDIOPATHIC THROMBOCYTOPENIC PURPURA
  4. PREDNISONE TAB [Concomitant]
  5. B12                                /00056201/ [Concomitant]
  6. IMMUNE GLOBULIN (HUMAN) [Concomitant]
     Indication: IDIOPATHIC THROMBOCYTOPENIC PURPURA

REACTIONS (1)
  - DRUG INEFFECTIVE [None]
